FAERS Safety Report 5402840-9 (Version None)
Quarter: 2007Q3

REPORT INFORMATION
  Report Type: 
  Country: None (occurrence: None)
  Receive Date: 20070730
  Receipt Date: 20070719
  Transmission Date: 20080115
  Serious: Yes (Other)
  Sender: FDA-Public Use
  Company Number: CHPA2007US07779

PATIENT
  Sex: Female
  Weight: 63.5 kg

DRUGS (1)
  1. VAGISTAT-1 [Suspect]
     Indication: VULVOVAGINAL MYCOTIC INFECTION
     Dosage: 300 MG, ONCE/SINGLE, VAGINAL
     Route: 067
     Dates: start: 20070715, end: 20070715

REACTIONS (3)
  - HAEMORRHAGE [None]
  - LABIA ENLARGED [None]
  - VULVAL HAEMORRHAGE [None]
